FAERS Safety Report 23269384 (Version 1)
Quarter: 2023Q4

REPORT INFORMATION
  Report Type: Spontaneous
  Country: US (occurrence: US)
  Receive Date: 20231207
  Receipt Date: 20231207
  Transmission Date: 20240110
  Serious: No
  Sender: FDA-Public Use
  Company Number: US-BRISTOL-MYERS SQUIBB COMPANY-2023-177105

PATIENT
  Age: 77 Year
  Sex: Male
  Weight: 69.26 kg

DRUGS (1)
  1. REBLOZYL [Suspect]
     Active Substance: LUSPATERCEPT-AAMT
     Indication: Product used for unknown indication
     Dosage: 25 MG FREQ: ONCE EVERY 3 WEEKS
     Route: 058

REACTIONS (1)
  - Weight decreased [Unknown]
